FAERS Safety Report 6227755-8 (Version None)
Quarter: 2009Q2

REPORT INFORMATION
  Report Type: 
  Country: None (occurrence: None)
  Receive Date: 20090612
  Receipt Date: 20090601
  Transmission Date: 20091009
  Serious: Yes (Other)
  Sender: FDA-Public Use
  Company Number: KR-PFIZER INC-2009222292

PATIENT

DRUGS (1)
  1. VIAGRA [Suspect]
     Indication: ERECTILE DYSFUNCTION
     Dosage: 50 MG, HALF OF A 100MG
     Route: 048
     Dates: start: 20090601

REACTIONS (3)
  - BLINDNESS TRANSIENT [None]
  - FALL [None]
  - SYNCOPE [None]
